FAERS Safety Report 5627016-1 (Version None)
Quarter: 2008Q1

REPORT INFORMATION
  Report Type: 
  Country: None (occurrence: None)
  Receive Date: 20080117
  Receipt Date: 20071106
  Transmission Date: 20080703
  Serious: Yes (Hospitalization)
  Sender: FDA-Public Use
  Company Number: E2020-01823-SPO-US

PATIENT
  Age: 79 Year
  Sex: Female

DRUGS (12)
  1. ARICEPT [Suspect]
     Indication: DEMENTIA
     Dosage: 10 MG, 1 IN 1 D, ORAL
     Route: 048
     Dates: start: 20070808, end: 20070902
  2. NAMENDA [Suspect]
     Indication: DEMENTIA
     Dosage: TITRATING DOSE FROM 5 MG QD TO 10 MG BID, ORAL
     Route: 048
     Dates: start: 20050501
  3. BENICAR [Concomitant]
  4. BONIVA [Concomitant]
  5. COREG [Concomitant]
  6. GLIPIZIDE [Concomitant]
  7. LASIX [Concomitant]
  8. GLUCOPHAGE [Concomitant]
  9. LEVOTHYROXINE SODIUM [Concomitant]
  10. NORVASC [Concomitant]
  11. ZOCOR [Concomitant]
  12. POTASSIUM (POTASSIUM) [Concomitant]

REACTIONS (1)
  - CONVULSION [None]
